FAERS Safety Report 21233838 (Version 1)
Quarter: 2022Q3

REPORT INFORMATION
  Report Type: Report from Study
  Country: KR (occurrence: KR)
  Receive Date: 20220819
  Receipt Date: 20220819
  Transmission Date: 20221027
  Serious: Yes (Hospitalization)
  Sender: FDA-Public Use
  Company Number: KR-BRISTOL-MYERS SQUIBB COMPANY-2022-085976

PATIENT
  Sex: Female
  Weight: 41.7 kg

DRUGS (5)
  1. NIVOLUMAB [Suspect]
     Active Substance: NIVOLUMAB
     Indication: Gastrooesophageal cancer
     Route: 042
     Dates: start: 20220704, end: 20220704
  2. REGORAFENIB [Suspect]
     Active Substance: REGORAFENIB
     Indication: Gastrooesophageal cancer
     Route: 048
     Dates: start: 20220704, end: 20220715
  3. GABAPENTIN [Concomitant]
     Active Substance: GABAPENTIN
     Indication: Gastrooesophageal cancer
     Route: 048
     Dates: start: 20190101
  4. PHAZYME [Concomitant]
     Active Substance: DIMETHICONE 410
     Indication: Gastrooesophageal cancer
     Route: 048
     Dates: start: 20190101
  5. TRAMADOL HYDROCHLORIDE [Concomitant]
     Active Substance: TRAMADOL HYDROCHLORIDE
     Indication: Gastrooesophageal cancer
     Route: 048
     Dates: start: 20190101

REACTIONS (1)
  - Dermatitis acneiform [Recovered/Resolved]

NARRATIVE: CASE EVENT DATE: 20220718
